FAERS Safety Report 4969536-9 (Version None)
Quarter: 2006Q2

REPORT INFORMATION
  Report Type: 
  Country: None (occurrence: None)
  Receive Date: 20060406
  Receipt Date: 20060324
  Transmission Date: 20061013
  Serious: Yes (Disabling)
  Sender: FDA-Public Use
  Company Number: HQWYE550528MAR06

PATIENT
  Age: 39 Year
  Sex: Female
  Weight: 46.76 kg

DRUGS (5)
  1. EFFEXOR XR [Suspect]
     Indication: DEPRESSION
     Dosage: 75 MG 1X PER 1 DAY; ORAL, 37.5 MG 1X PER 1 DAY; ORAL, 37.5 MG 1X PER 2 DAY; ORAL
     Route: 048
     Dates: start: 20051101, end: 20060219
  2. EFFEXOR XR [Suspect]
     Indication: DEPRESSION
     Dosage: 75 MG 1X PER 1 DAY; ORAL, 37.5 MG 1X PER 1 DAY; ORAL, 37.5 MG 1X PER 2 DAY; ORAL
     Route: 048
     Dates: start: 20060201, end: 20060301
  3. EFFEXOR XR [Suspect]
     Indication: DEPRESSION
     Dosage: 75 MG 1X PER 1 DAY; ORAL, 37.5 MG 1X PER 1 DAY; ORAL, 37.5 MG 1X PER 2 DAY; ORAL
     Route: 048
     Dates: start: 20060301, end: 20060316
  4. WELLBUTRIN [Suspect]
     Dosage: DOSE AND FREQUENCY UNSPECIFIED
     Dates: start: 20060220, end: 20060201
  5. CLONOPIN (CLONAZEPAM) [Concomitant]

REACTIONS (7)
  - DRUG INEFFECTIVE [None]
  - DRUG WITHDRAWAL SYNDROME [None]
  - DYSSTASIA [None]
  - IMPAIRED WORK ABILITY [None]
  - NAUSEA [None]
  - NIGHT SWEATS [None]
  - PARAESTHESIA [None]
